FAERS Safety Report 11830592 (Version 1)
Quarter: 2015Q4

REPORT INFORMATION
  Report Type: Report from Study
  Country: JP (occurrence: JP)
  Receive Date: 20151214
  Receipt Date: 20151214
  Transmission Date: 20160305
  Serious: Yes (Death, Other)
  Sender: FDA-Public Use
  Company Number: JP-009507513-1512JPN004530

PATIENT
  Age: 7 Month
  Sex: Male
  Weight: 7.5 kg

DRUGS (18)
  1. FUROSEMIDE. [Concomitant]
     Active Substance: FUROSEMIDE
     Dosage: 6 MG, QD, DIVIDED DOSE FREQUENCY UNKNOWN, FORMULATION: FGR
     Route: 048
     Dates: start: 20130310, end: 20131120
  2. ALDACTONE A (SPIRONOLACTONE) [Concomitant]
     Active Substance: SPIRONOLACTONE
     Dosage: 6 MG, QD, DIVIDED DOSE FREQUENCY UNKNOWN
     Route: 048
     Dates: start: 20130310, end: 20131120
  3. DIAZOXIDE CAPSULES 25 MG ^MSD^ [Suspect]
     Active Substance: DIAZOXIDE
     Dosage: 20 MG, TID
     Route: 048
     Dates: start: 20130710, end: 20130715
  4. DIAZOXIDE CAPSULES 25 MG ^MSD^ [Suspect]
     Active Substance: DIAZOXIDE
     Dosage: 23 MG, TID
     Route: 048
     Dates: start: 20130908, end: 20131002
  5. THEOPHYLLINE [Concomitant]
     Active Substance: THEOPHYLLINE ANHYDROUS
     Dosage: 12 MG, QD, DIVIDED DOSE FREQUENCY UNKNOWN
     Route: 048
     Dates: start: 20130411, end: 20131120
  6. DEXTROSE. [Concomitant]
     Active Substance: DEXTROSE
     Dosage: DAILY DOSE UNKNOWN
     Route: 042
  7. DIAZOXIDE CAPSULES 25 MG ^MSD^ [Suspect]
     Active Substance: DIAZOXIDE
     Indication: HYPOGLYCAEMIA
     Dosage: 6.7 MG, TID
     Route: 048
     Dates: start: 20130606, end: 20130610
  8. L CARTIN [Concomitant]
     Dosage: 25 MG, QD, DIVIDED DOSE FREQUENCY UNKNOWN
     Route: 048
     Dates: start: 20130501, end: 20131120
  9. DIAZOXIDE CAPSULES 25 MG ^MSD^ [Suspect]
     Active Substance: DIAZOXIDE
     Dosage: 11 MG, TID
     Route: 048
     Dates: start: 20130815, end: 20130907
  10. URSO [Concomitant]
     Active Substance: URSODIOL
     Dosage: 25 MG, QD, DIVIDED DOSE FREQUENCY UNKNOWN
     Route: 048
     Dates: start: 20130309, end: 20130616
  11. GLYCYRON [Concomitant]
     Active Substance: AMMONIUM GLYCYRRHIZATE\GLYCINE\METHIONINE
     Dosage: 0.3 DF, QD, DIVIDED DOSE FREQUENCY UNKNOWN
     Route: 048
     Dates: start: 20130310, end: 20130609
  12. DIAZOXIDE CAPSULES 25 MG ^MSD^ [Suspect]
     Active Substance: DIAZOXIDE
     Dosage: 11 MG, TID
     Route: 048
     Dates: start: 20130625, end: 20130704
  13. DIAZOXIDE CAPSULES 25 MG ^MSD^ [Suspect]
     Active Substance: DIAZOXIDE
     Dosage: 14 MG, TID
     Route: 048
     Dates: start: 20130705, end: 20130709
  14. DIAZOXIDE CAPSULES 25 MG ^MSD^ [Suspect]
     Active Substance: DIAZOXIDE
     Dosage: 16 MG, TID
     Route: 048
     Dates: start: 20130807, end: 20130814
  15. DIAZOXIDE CAPSULES 25 MG ^MSD^ [Suspect]
     Active Substance: DIAZOXIDE
     Dosage: 23 MG, TID
     Route: 048
     Dates: start: 20130716, end: 20130806
  16. DIAZOXIDE CAPSULES 25 MG ^MSD^ [Suspect]
     Active Substance: DIAZOXIDE
     Dosage: 14 MG, TID
     Route: 048
     Dates: start: 20131003, end: 20131006
  17. ALFAROL [Concomitant]
     Active Substance: ALFACALCIDOL
     Dosage: 0.1 ML, QD, DIVIDED DOSE FREQUENCY UNKNOWN
     Route: 048
     Dates: start: 20130319, end: 20130703
  18. DIAZOXIDE CAPSULES 25 MG ^MSD^ [Suspect]
     Active Substance: DIAZOXIDE
     Dosage: 10MG, TID
     Route: 048
     Dates: start: 20130610, end: 20130624

REACTIONS (5)
  - Cardiac hypertrophy [Fatal]
  - Oedema [Recovering/Resolving]
  - Hypoxia [Recovering/Resolving]
  - Asthma [Fatal]
  - Pulmonary oedema [Recovering/Resolving]

NARRATIVE: CASE EVENT DATE: 20130610
